FAERS Safety Report 11564080 (Version 1)
Quarter: 2015Q3

REPORT INFORMATION
  Report Type: Spontaneous
  Country: US (occurrence: US)
  Receive Date: 20150928
  Receipt Date: 20150928
  Transmission Date: 20151125
  Serious: Yes (Hospitalization)
  Sender: FDA-Public Use
  Company Number: US-MYLANLABS-2015M1032537

PATIENT

DRUGS (4)
  1. SALBUTAMOL [Suspect]
     Active Substance: ALBUTEROL
     Dosage: NEBULISED; 5 MG/HR FOR 1 HOUR
     Route: 055
  2. DEXAMETHASONE. [Concomitant]
     Active Substance: DEXAMETHASONE
     Indication: ASTHMA
     Dosage: 10 MG
     Route: 042
  3. SALBUTAMOL [Suspect]
     Active Substance: ALBUTEROL
     Indication: ASTHMA
     Dosage: NEBULISED; 22.5 MG/5 HOURS; LATER 2.5 MG EVERY TWO HOURS
     Route: 055
  4. SALBUTAMOL [Suspect]
     Active Substance: ALBUTEROL
     Dosage: NEBULISED 2.5 MG EVERY TWO HOURS; AND THEN FINALLY 5 MG/HR FOR 1 HOUR
     Route: 055

REACTIONS (2)
  - Lactic acidosis [Recovered/Resolved]
  - Diastolic hypotension [Recovered/Resolved]
